FAERS Safety Report 10553696 (Version 2)
Quarter: 2014Q4

REPORT INFORMATION
  Report Type: Spontaneous
  Country: DE (occurrence: DE)
  Receive Date: 20141030
  Receipt Date: 20141030
  Transmission Date: 20150529
  Serious: Yes (Other)
  Sender: FDA-Public Use
  Company Number: PHHY2014DE136291

PATIENT
  Sex: Male

DRUGS (3)
  1. GLIVEC [Suspect]
     Active Substance: IMATINIB MESYLATE
     Indication: GASTROINTESTINAL STROMAL TUMOUR
     Dosage: 400 MG, QD
     Route: 065
     Dates: start: 200511
  2. DEKRISTOL [Concomitant]
     Active Substance: CHOLECALCIFEROL
     Indication: PRODUCT USED FOR UNKNOWN INDICATION
     Dosage: 20000 IU, ONCE PER WEEK
     Route: 065
  3. ATACAND [Concomitant]
     Active Substance: CANDESARTAN CILEXETIL
     Indication: PRODUCT USED FOR UNKNOWN INDICATION
     Dosage: 4 MG, 1-0-0-0
     Route: 065

REACTIONS (11)
  - Thrombotic microangiopathy [Unknown]
  - Tendon rupture [Unknown]
  - Sleep apnoea syndrome [Unknown]
  - Hyperparathyroidism secondary [Unknown]
  - Neoplasm [Unknown]
  - Anaemia [Unknown]
  - Chronic kidney disease [Unknown]
  - IgA nephropathy [Unknown]
  - Proteinuria [Unknown]
  - Hypertension [Unknown]
  - Diverticulum [Unknown]

NARRATIVE: CASE EVENT DATE: 2006
